FAERS Safety Report 12523089 (Version 4)
Quarter: 2020Q3

REPORT INFORMATION
  Report Type: Report from Study
  Country: GB (occurrence: GB)
  Receive Date: 20160701
  Receipt Date: 20200211
  Transmission Date: 20201104
  Serious: Yes (Other)
  Sender: FDA-Public Use
  Company Number: GB-ASTRAZENECA-2016SE69946

PATIENT
  Age: 24515 Day
  Sex: Female
  Weight: 51.1 kg

DRUGS (3)
  1. OLAPARIB. [Suspect]
     Active Substance: OLAPARIB
     Indication: OVARIAN CANCER
     Route: 048
     Dates: start: 20160420, end: 20160620
  2. PARACETAMOL [Concomitant]
     Active Substance: ACETAMINOPHEN
     Indication: ANALGESIC THERAPY
     Dosage: 1.0G AS REQUIRED
     Route: 048
  3. CAPIVASERTIB. [Suspect]
     Active Substance: CAPIVASERTIB
     Indication: OVARIAN CANCER
     Route: 048
     Dates: start: 20160420, end: 20160620

REACTIONS (1)
  - Pneumonitis [Recovered/Resolved]

NARRATIVE: CASE EVENT DATE: 20160622
